FAERS Safety Report 11335016 (Version 2)
Quarter: 2015Q3

REPORT INFORMATION
  Report Type: Spontaneous
  Country: US (occurrence: US)
  Receive Date: 20150804
  Receipt Date: 20150910
  Transmission Date: 20151125
  Serious: No
  Sender: FDA-Public Use
  Company Number: US-PFIZER INC-2015246537

PATIENT
  Age: 86 Year
  Sex: Female
  Weight: 50 kg

DRUGS (5)
  1. ADVIL [Suspect]
     Active Substance: IBUPROFEN
     Indication: ARTHRITIS
     Dosage: 200 MG, 2X/DAY, MORNING AND EVENING
     Route: 048
     Dates: start: 2015
  2. ADVIL [Suspect]
     Active Substance: IBUPROFEN
     Indication: NECK PAIN
  3. HYDROCODONE [Concomitant]
     Active Substance: HYDROCODONE
     Indication: SPINAL COLUMN STENOSIS
     Dosage: UNK
  4. ADVIL [Suspect]
     Active Substance: IBUPROFEN
     Indication: SPINAL COLUMN STENOSIS
     Dosage: UNK
  5. HYDROCODONE [Concomitant]
     Active Substance: HYDROCODONE
     Indication: ARTHRITIS
     Dosage: 7.5/325 MG, 3X/DAY, EVERY 8 HOURS
     Route: 048

REACTIONS (3)
  - Visual acuity reduced [Recovered/Resolved]
  - Product use issue [Unknown]
  - Vision blurred [Recovered/Resolved]

NARRATIVE: CASE EVENT DATE: 2015
